FAERS Safety Report 9496369 (Version 3)
Quarter: 2013Q3

REPORT INFORMATION
  Report Type: Spontaneous
  Country: JP (occurrence: JP)
  Receive Date: 20130904
  Receipt Date: 20130916
  Transmission Date: 20140515
  Serious: Yes (Other)
  Sender: FDA-Public Use
  Company Number: JP-JNJFOC-20130817359

PATIENT
  Age: 32 Year
  Sex: Male

DRUGS (2)
  1. REMICADE [Suspect]
     Indication: CROHN^S DISEASE
     Route: 042
  2. AZANIN [Suspect]
     Indication: CROHN^S DISEASE
     Route: 048

REACTIONS (1)
  - Myeloid leukaemia [Recovering/Resolving]
